FAERS Safety Report 8877156 (Version 1)
Quarter: 2012Q4

REPORT INFORMATION
  Report Type: Spontaneous
  Country: US (occurrence: None)
  Receive Date: 20121026
  Receipt Date: 20121026
  Transmission Date: 20130627
  Serious: Yes (Other)
  Sender: FDA-Public Use
  Company Number: ADR-2012-01942

PATIENT
  Sex: Male

DRUGS (2)
  1. BACLOFEN INTRATHECAL(BACLOFEN INJECTION) [Suspect]
     Indication: SPASTICITY
  2. BACLOFEN INTRATHECAL(BACLOFEN INJECTION) [Suspect]
     Indication: CEREBRAL PALSY

REACTIONS (7)
  - Balance disorder [None]
  - Decreased appetite [None]
  - Asthenia [None]
  - Vomiting [None]
  - Poor quality sleep [None]
  - Gait disturbance [None]
  - Altered state of consciousness [None]
